FAERS Safety Report 5302507-1 (Version None)
Quarter: 2007Q2

REPORT INFORMATION
  Report Type: 
  Country: None (occurrence: None)
  Receive Date: 20070419
  Receipt Date: 20070410
  Transmission Date: 20071010
  Serious: Yes (Hospitalization)
  Sender: FDA-Public Use
  Company Number: US-ELI_LILLY_AND_COMPANY-US200704002119

PATIENT
  Age: 67 Year
  Sex: Male

DRUGS (7)
  1. HUMULIN R [Suspect]
     Indication: DIABETES MELLITUS INSULIN-DEPENDENT
     Dates: start: 19400101, end: 20060505
  2. HUMULIN R [Suspect]
     Dosage: UNK, UNK
     Dates: start: 20060505, end: 20060622
  3. HUMULIN R [Suspect]
     Dosage: 5 U, 3/D
     Dates: start: 20070328
  4. HUMULIN N [Suspect]
     Indication: DIABETES MELLITUS INSULIN-DEPENDENT
     Dates: start: 19400101, end: 20060505
  5. HUMULIN N [Suspect]
     Dates: start: 20060622, end: 20060816
  6. HUMULIN N [Suspect]
     Dosage: 20 U, EACH MORNING
     Dates: start: 20070328
  7. HUMULIN N [Suspect]
     Dosage: 5 U, EACH EVENING
     Dates: start: 20070328

REACTIONS (8)
  - AORTIC STENOSIS [None]
  - BALANCE DISORDER [None]
  - BLOOD GLUCOSE DECREASED [None]
  - CEREBRAL HAEMORRHAGE [None]
  - CEREBROVASCULAR ACCIDENT [None]
  - FALL [None]
  - GAIT DISTURBANCE [None]
  - MUSCULAR WEAKNESS [None]
